FAERS Safety Report 25478870 (Version 1)
Quarter: 2025Q2

REPORT INFORMATION
  Report Type: Spontaneous
  Country: US (occurrence: None)
  Receive Date: 20250624
  Receipt Date: 20250624
  Transmission Date: 20250716
  Serious: Yes (Other)
  Sender: FDA-CTU
  Company Number: None

PATIENT
  Age: 40 Year
  Sex: Male
  Weight: 117.6 kg

DRUGS (5)
  1. VALPROIC ACID [Suspect]
     Active Substance: VALPROIC ACID
     Indication: Affective disorder
     Dosage: FREQUENCY : TWICE A DAY;?
     Route: 048
     Dates: start: 20231011, end: 20250429
  2. Cholecalciferol 25mcg [Concomitant]
  3. ESCITALOPRAM [Concomitant]
     Active Substance: ESCITALOPRAM OXALATE
  4. Famotidine 10mg [Concomitant]
  5. OLANZAPINE [Concomitant]
     Active Substance: OLANZAPINE

REACTIONS (10)
  - Jaundice [None]
  - Hepatotoxicity [None]
  - Drug-induced liver injury [None]
  - Ammonia increased [None]
  - Biliary dilatation [None]
  - Cholangitis [None]
  - Gallbladder enlargement [None]
  - Hepatitis [None]
  - Liver disorder [None]
  - Blood alkaline phosphatase increased [None]

NARRATIVE: CASE EVENT DATE: 20250429
